FAERS Safety Report 4848931-2 (Version None)
Quarter: 2005Q4

REPORT INFORMATION
  Report Type: 
  Country: None (occurrence: None)
  Receive Date: 20051208
  Receipt Date: 20051201
  Transmission Date: 20060501
  Serious: Yes (Other)
  Sender: FDA-Public Use
  Company Number: CN-MERCK-0512CHN00002

PATIENT
  Age: 74 Year
  Sex: Female

DRUGS (8)
  1. VIOXX [Suspect]
     Indication: GOUT
     Route: 048
     Dates: start: 20030901, end: 20031001
  2. VIOXX [Suspect]
     Route: 048
     Dates: start: 20031201, end: 20040101
  3. VIOXX [Suspect]
     Route: 048
     Dates: start: 20040901, end: 20041001
  4. VIOXX [Suspect]
     Route: 048
     Dates: start: 20041201, end: 20050101
  5. VIOXX [Suspect]
     Route: 048
     Dates: start: 20031001
  6. DICLOFENAC DIETHYLAMINE [Concomitant]
     Indication: PAIN
     Route: 065
     Dates: start: 20031001, end: 20050901
  7. AMLODIPINE BESYLATE [Concomitant]
     Indication: HYPERTENSION
     Route: 065
     Dates: start: 20020101
  8. ISOSORBIDE MONONITRATE [Concomitant]
     Indication: MYOCARDIAL ISCHAEMIA
     Route: 065

REACTIONS (2)
  - CEREBRAL INFARCTION [None]
  - CONDITION AGGRAVATED [None]
